FAERS Safety Report 14022451 (Version 1)
Quarter: 2017Q3

REPORT INFORMATION
  Report Type: Spontaneous
  Country: FR (occurrence: FR)
  Receive Date: 20170928
  Receipt Date: 20170928
  Transmission Date: 20171128
  Serious: Yes (Hospitalization, Other)
  Sender: FDA-Public Use
  Company Number: FR-ABBVIE-17K-056-2112972-00

PATIENT
  Age: 45 Year
  Sex: Male

DRUGS (5)
  1. ANDROTARDYL [Concomitant]
     Active Substance: TESTOSTERONE
     Indication: PRODUCT USED FOR UNKNOWN INDICATION
  2. HUMIRA [Suspect]
     Active Substance: ADALIMUMAB
     Indication: ANKYLOSING SPONDYLITIS
     Route: 058
     Dates: start: 201307, end: 201609
  3. NIMOTOP [Concomitant]
     Active Substance: NIMODIPINE
     Indication: REVERSIBLE CEREBRAL VASOCONSTRICTION SYNDROME
     Dates: start: 201610
  4. LEVOTHYROX [Concomitant]
     Active Substance: LEVOTHYROXINE
     Indication: PRODUCT USED FOR UNKNOWN INDICATION
  5. MINIRIN [Concomitant]
     Active Substance: DESMOPRESSIN ACETATE
     Indication: PRODUCT USED FOR UNKNOWN INDICATION

REACTIONS (12)
  - Cerebral haemorrhage [Unknown]
  - Memory impairment [Unknown]
  - Vasculitis cerebral [Unknown]
  - Cerebral vasoconstriction [Unknown]
  - Cerebral capillary telangiectasia [Unknown]
  - Fall [Unknown]
  - Confusional state [Unknown]
  - Disturbance in attention [Unknown]
  - Cerebral ischaemia [Unknown]
  - Sleep disorder [Unknown]
  - Psychomotor retardation [Recovering/Resolving]
  - Aneurysm [Unknown]

NARRATIVE: CASE EVENT DATE: 201611
